FAERS Safety Report 9679568 (Version 1)
Quarter: 2013Q4

REPORT INFORMATION
  Report Type: Spontaneous
  Country: US (occurrence: US)
  Receive Date: 20131109
  Receipt Date: 20131109
  Transmission Date: 20140711
  Serious: No
  Sender: FDA-Public Use
  Company Number: US-SA-2013SA095314

PATIENT
  Sex: Male

DRUGS (2)
  1. ALLEGRA-D, 12 HR [Suspect]
     Route: 048
  2. ALLEGRA 24 HOUR [Concomitant]

REACTIONS (2)
  - Medication residue present [Unknown]
  - Drug ineffective [Unknown]
